FAERS Safety Report 12430371 (Version 2)
Quarter: 2016Q3

REPORT INFORMATION
  Report Type: Spontaneous
  Country: US (occurrence: US)
  Receive Date: 20160602
  Receipt Date: 20160721
  Transmission Date: 20161109
  Serious: Yes (Other)
  Sender: FDA-Public Use
  Company Number: US-FRI-1000085013

PATIENT
  Sex: Female

DRUGS (2)
  1. NAMENDA XR [Suspect]
     Active Substance: MEMANTINE HYDROCHLORIDE
     Indication: DEMENTIA
     Dosage: 28MG
     Route: 048
  2. SAPHRIS [Suspect]
     Active Substance: ASENAPINE MALEATE
     Dosage: 10MG
     Route: 060

REACTIONS (1)
  - No adverse event [Not Recovered/Not Resolved]
